FAERS Safety Report 4627980-3 (Version None)
Quarter: 2005Q2

REPORT INFORMATION
  Report Type: 
  Country: None (occurrence: None)
  Receive Date: 20050401
  Receipt Date: 20050317
  Transmission Date: 20051028
  Serious: Yes (Death)
  Sender: FDA-Public Use
  Company Number: 2005S1001328

PATIENT
  Age: 57 Year
  Sex: Male

DRUGS (7)
  1. CLOZAPINE [Suspect]
     Dosage: SEE IMAGE, PO
     Route: 048
     Dates: start: 20050201
  2. CLOZAPINE [Suspect]
     Dosage: SEE IMAGE, PO
     Route: 048
     Dates: start: 20050201
  3. TIOTROPIUM BROMIDE [Concomitant]
  4. LANSOPRAZOLE [Concomitant]
  5. DOCUSATE SODIUM [Concomitant]
  6. SALMETEROL XINAFOATE [Concomitant]
  7. ESCITALOPRAM [Concomitant]

REACTIONS (1)
  - DEATH [None]
